FAERS Safety Report 12928938 (Version 1)
Quarter: 2016Q4

REPORT INFORMATION
  Report Type: Spontaneous
  Country: GB (occurrence: GB)
  Receive Date: 20161110
  Receipt Date: 20161110
  Transmission Date: 20170207
  Serious: Yes (Other)
  Sender: FDA-Public Use
  Company Number: GB-MYLANLABS-2016M1048608

PATIENT

DRUGS (2)
  1. DEXAMETHASONE. [Concomitant]
     Active Substance: DEXAMETHASONE
     Indication: OBSTRUCTIVE AIRWAYS DISORDER
     Dosage: 8 MG
     Route: 042
  2. EPINEPHRINE. [Suspect]
     Active Substance: EPINEPHRINE
     Indication: OBSTRUCTIVE AIRWAYS DISORDER
     Dosage: 1 MICROG/5 ML, GIVEN TWICE
     Route: 055

REACTIONS (1)
  - Stress cardiomyopathy [Unknown]
